FAERS Safety Report 24726695 (Version 1)
Quarter: 2024Q4

REPORT INFORMATION
  Report Type: Spontaneous
  Country: FR (occurrence: FR)
  Receive Date: 20241212
  Receipt Date: 20241212
  Transmission Date: 20250114
  Serious: Yes (Other)
  Sender: ELI LILLY AND COMPANY
  Company Number: None

PATIENT
  Sex: Female
  Weight: 3.18 kg

DRUGS (6)
  1. DULOXETINE HYDROCHLORIDE [Suspect]
     Active Substance: DULOXETINE HYDROCHLORIDE
     Indication: Fibromyalgia
     Dosage: 60 MG, DAILY
     Route: 064
     Dates: end: 20240626
  2. DULOXETINE HYDROCHLORIDE [Suspect]
     Active Substance: DULOXETINE HYDROCHLORIDE
     Indication: Fibromyalgia
     Dosage: 60 MG, DAILY
     Route: 064
     Dates: end: 20240626
  3. TRANDATE [Suspect]
     Active Substance: LABETALOL HYDROCHLORIDE
     Indication: Hypertension
     Dosage: 400 MG, DAILY
     Route: 064
     Dates: end: 20240626
  4. TRANDATE [Suspect]
     Active Substance: LABETALOL HYDROCHLORIDE
     Indication: Hypertension
     Dosage: 400 MG, DAILY
     Route: 064
     Dates: end: 20240626
  5. NICARDIPINE HYDROCHLORIDE [Suspect]
     Active Substance: NICARDIPINE HYDROCHLORIDE
     Indication: Hypertension
     Route: 064
     Dates: end: 20240626
  6. NICARDIPINE HYDROCHLORIDE [Suspect]
     Active Substance: NICARDIPINE HYDROCHLORIDE
     Indication: Hypertension
     Route: 064
     Dates: end: 20240626

REACTIONS (2)
  - Neonatal respiratory distress [Recovered/Resolved]
  - Foetal exposure during pregnancy [Recovered/Resolved]

NARRATIVE: CASE EVENT DATE: 20240626
